FAERS Safety Report 11934667 (Version 1)
Quarter: 2016Q1

REPORT INFORMATION
  Report Type: Spontaneous
  Country: US (occurrence: None)
  Receive Date: 20160120
  Receipt Date: 20160120
  Transmission Date: 20160526
  Serious: Yes (Other)
  Sender: FDA-Public Use
  Company Number: None

PATIENT
  Age: 63 Year
  Sex: Female
  Weight: 62.6 kg

DRUGS (7)
  1. DEXTROSE. [Suspect]
     Active Substance: DEXTROSE
  2. FISH OIL [Concomitant]
     Active Substance: FISH OIL
  3. COCONUT OIL [Concomitant]
     Active Substance: COCONUT OIL
  4. STOOL SOFTENER [Concomitant]
     Active Substance: DOCUSATE CALCIUM
  5. WARFARIN [Concomitant]
     Active Substance: WARFARIN
  6. ASPIRIN. [Concomitant]
     Active Substance: ASPIRIN
  7. CINNAMON. [Concomitant]
     Active Substance: CINNAMON

REACTIONS (2)
  - Mental impairment [None]
  - Confusional state [None]

NARRATIVE: CASE EVENT DATE: 20151228
